FAERS Safety Report 12551004 (Version 4)
Quarter: 2016Q3

REPORT INFORMATION
  Report Type: Spontaneous
  Country: FR (occurrence: FR)
  Receive Date: 20160713
  Receipt Date: 20160928
  Transmission Date: 20161109
  Serious: Yes (Hospitalization)
  Sender: FDA-Public Use
  Company Number: FR-BAXTER-2016BAX035626

PATIENT
  Age: 83 Year
  Sex: Female
  Weight: 59 kg

DRUGS (4)
  1. CLINIMIX [Suspect]
     Active Substance: ALANINE\ARGININE\DEXTROSE\GLYCINE\HISTIDINE\ISOLEUCINE\LEUCINE\LYSINE\METHIONINE\PHENYLALANINE\PROLINE\SERINE\THREONINE\TRYPTOPHAN\TYROSINE\VALINE
     Indication: PRODUCT USED FOR UNKNOWN INDICATION
     Route: 058
     Dates: start: 201606, end: 201607
  2. LEVOTHYROX [Concomitant]
     Active Substance: LEVOTHYROXINE
     Indication: HYPOTHYROIDISM
     Route: 065
  3. DUROGESIC [Concomitant]
     Active Substance: FENTANYL
     Indication: PRODUCT USED FOR UNKNOWN INDICATION
     Route: 065
  4. RISPERDAL [Concomitant]
     Active Substance: RISPERIDONE
     Indication: PRODUCT USED FOR UNKNOWN INDICATION
     Route: 065

REACTIONS (3)
  - Administration site necrosis [Recovered/Resolved with Sequelae]
  - Off label use [Unknown]
  - Diet refusal [Unknown]

NARRATIVE: CASE EVENT DATE: 201606
